FAERS Safety Report 4616234-7 (Version None)
Quarter: 2005Q1

REPORT INFORMATION
  Report Type: 
  Country: None (occurrence: None)
  Receive Date: 20050321
  Receipt Date: 20050311
  Transmission Date: 20050727
  Serious: Yes (Hospitalization)
  Sender: FDA-Public Use
  Company Number: 2005US-00485

PATIENT
  Age: 49 Year
  Sex: Male

DRUGS (1)
  1. IBUPROFEN (IBUPROFEN) CAPSULE, 200MG [Suspect]
     Dosage: ORAL
     Route: 048

REACTIONS (11)
  - ASTHENIA [None]
  - DEHYDRATION [None]
  - DRUG ABUSER [None]
  - EPIGASTRIC DISCOMFORT [None]
  - HYPERURICAEMIA [None]
  - HYPOKALAEMIA [None]
  - LETHARGY [None]
  - OVERDOSE [None]
  - PAIN [None]
  - PSYCHOTIC DISORDER [None]
  - VOMITING [None]
